FAERS Safety Report 8347329-2 (Version None)
Quarter: 2012Q2

REPORT INFORMATION
  Report Type: 
  Country: None (occurrence: None)
  Receive Date: 20120509
  Receipt Date: 20120427
  Transmission Date: 20120825
  Serious: Yes (Hospitalization)
  Sender: FDA-Public Use
  Company Number: US-GILEAD-E2B_00001253

PATIENT
  Sex: Male

DRUGS (11)
  1. OMEPRAZOLE [Concomitant]
     Indication: GASTROOESOPHAGEAL REFLUX DISEASE
     Dosage: 20MG TWICE PER DAY
     Route: 048
     Dates: start: 20110427
  2. LISINOPRIL [Concomitant]
     Indication: HYPERTENSION
     Dosage: 2.5MG PER DAY
     Route: 048
     Dates: start: 20110427
  3. METOPROLOL TARTRATE [Concomitant]
     Indication: HYPERTENSION
     Dosage: 25MG TWICE PER DAY
     Route: 048
     Dates: start: 20110427
  4. DOCUSATE SODIUM [Concomitant]
     Indication: CONSTIPATION
     Dosage: 100MG AS REQUIRED
     Route: 048
     Dates: start: 20110427, end: 20110506
  5. VITAMIN D CALCIUM [Concomitant]
     Indication: VITAMIN D DEFICIENCY
     Dosage: 500MG TWICE PER DAY
     Route: 048
     Dates: start: 20110427
  6. AMBRISENTAN [Suspect]
     Indication: PULMONARY ARTERIAL HYPERTENSION
     Dosage: 5 MG, QD
     Route: 048
     Dates: start: 20110318
  7. TADALAFIL [Suspect]
     Indication: PULMONARY ARTERIAL HYPERTENSION
     Dosage: 40 MG, QD
     Route: 048
     Dates: start: 20110318
  8. POTASSIUM CHLORIDE [Concomitant]
     Indication: PROPHYLAXIS
     Dosage: 20MEQ PER DAY
     Route: 048
     Dates: start: 20110427
  9. FERROUS SULFATE TAB [Concomitant]
     Indication: ANAEMIA
     Dosage: 325MG TWICE PER DAY
     Route: 048
     Dates: start: 20110427
  10. VITAMIN C                          /00008001/ [Concomitant]
     Indication: PROPHYLAXIS
     Dosage: 250MG THREE TIMES PER DAY
     Route: 048
     Dates: start: 20110427
  11. FUROSEMIDE [Concomitant]
     Indication: OEDEMA PERIPHERAL
     Dosage: 20MG PER DAY
     Route: 048
     Dates: start: 20110427

REACTIONS (1)
  - SYSTEMIC SCLEROSIS [None]
